FAERS Safety Report 14179623 (Version 3)
Quarter: 2017Q4

REPORT INFORMATION
  Report Type: Spontaneous
  Country: FR (occurrence: FR)
  Receive Date: 20171110
  Receipt Date: 20171211
  Transmission Date: 20180321
  Serious: Yes (Other)
  Sender: FDA-Public Use
  Company Number: FR-BAUSCH-BL-2017-030996

PATIENT
  Age: 39 Year
  Sex: Female
  Weight: 90 kg

DRUGS (1)
  1. ALDARA [Suspect]
     Active Substance: IMIQUIMOD
     Indication: ANOGENITAL WARTS
     Dosage: 3 APPLICATIONS A WEEK
     Route: 065
     Dates: start: 20171021, end: 20171024

REACTIONS (8)
  - Pyrexia [Recovered/Resolved]
  - Skin ulcer [Recovering/Resolving]
  - General physical condition abnormal [Unknown]
  - Inflammation [Recovered/Resolved]
  - Burns first degree [Not Recovered/Not Resolved]
  - Pain [Unknown]
  - Infection [Not Recovered/Not Resolved]
  - Hyperaesthesia [Unknown]

NARRATIVE: CASE EVENT DATE: 2017
